FAERS Safety Report 10151578 (Version 2)
Quarter: 2014Q2

REPORT INFORMATION
  Report Type: Spontaneous
  Country: JP (occurrence: JP)
  Receive Date: 20140505
  Receipt Date: 20140505
  Transmission Date: 20141212
  Serious: Yes (Disabling, Other)
  Sender: FDA-Public Use
  Company Number: JP-ROCHE-1386706

PATIENT
  Age: 63 Year
  Sex: Male
  Weight: 72 kg

DRUGS (2)
  1. AVASTIN [Suspect]
     Indication: MALIGNANT GLIOMA
     Route: 041
     Dates: start: 20140326, end: 20140326
  2. TEMODAL [Concomitant]
     Indication: MALIGNANT GLIOMA
     Route: 065
     Dates: start: 20140326, end: 20140330

REACTIONS (2)
  - Cerebral haemorrhage [Recovered/Resolved with Sequelae]
  - Pneumonia aspiration [Unknown]
